FAERS Safety Report 4426156-2 (Version None)
Quarter: 2004Q3

REPORT INFORMATION
  Report Type: 
  Country: None (occurrence: None)
  Receive Date: 20040811
  Receipt Date: 20040727
  Transmission Date: 20050211
  Serious: Yes (Death, Hospitalization)
  Sender: FDA-Public Use
  Company Number: US_031098364

PATIENT
  Age: 48 Year
  Sex: Male
  Weight: 81 kg

DRUGS (9)
  1. HUMATROPE [Suspect]
     Indication: GROWTH HORMONE DEFICIENCY
     Dosage: 0.6 MG/1 DAY
     Dates: start: 19990610
  2. SYNTHROID [Concomitant]
  3. INDERAL [Concomitant]
  4. MIGRANAL (DIHYDROERGOTAMINE MESILATE) [Concomitant]
  5. EXCEDRIN (MIGRAINE) [Concomitant]
  6. TYLENOL PM [Concomitant]
  7. PREDNISONE [Concomitant]
  8. PROZAC [Concomitant]
  9. XANAX [Concomitant]

REACTIONS (7)
  - CONDITION AGGRAVATED [None]
  - DYSPNOEA [None]
  - ECHOCARDIOGRAM ABNORMAL [None]
  - PULMONARY FIBROSIS [None]
  - RESPIRATORY ARREST [None]
  - SARCOIDOSIS [None]
  - SYNCOPE [None]
